FAERS Safety Report 10213604 (Version 1)
Quarter: 2014Q2

REPORT INFORMATION
  Report Type: Spontaneous
  Country: US (occurrence: None)
  Receive Date: 20140602
  Receipt Date: 20140602
  Transmission Date: 20141212
  Serious: Yes (Hospitalization)
  Sender: FDA-Public Use
  Company Number: None

PATIENT
  Age: 77 Year
  Sex: Male

DRUGS (1)
  1. METFORMIN [Suspect]
     Indication: DIABETES MELLITUS
     Dosage: TWO TABLETS TWICE DAILY TAKEN BY MOUTH
     Route: 048
     Dates: start: 20131105, end: 20140501

REACTIONS (7)
  - Malaise [None]
  - Feeling abnormal [None]
  - Nephrolithiasis [None]
  - Kidney infection [None]
  - Infection [None]
  - Blood disorder [None]
  - Asthenia [None]
